FAERS Safety Report 14909785 (Version 4)
Quarter: 2018Q3

REPORT INFORMATION
  Report Type: Spontaneous
  Country: SK (occurrence: SK)
  Receive Date: 20180517
  Receipt Date: 20180702
  Transmission Date: 20181010
  Serious: Yes (Other)
  Sender: FDA-Public Use
  Company Number: SK-CELLTRION INC.-2018SK019817

PATIENT

DRUGS (6)
  1. INFLIXIMAB PFIZER (UNKNOWN) [Suspect]
     Active Substance: INFLIXIMAB
     Indication: PSORIASIS
     Dosage: UNK
     Route: 065
     Dates: start: 2000, end: 2005
  2. PREDNISONE. [Suspect]
     Active Substance: PREDNISONE
     Indication: PSORIASIS
     Dosage: UNK
     Route: 048
  3. ETANERCEPT [Suspect]
     Active Substance: ETANERCEPT
     Indication: PSORIASIS
     Dosage: UNK
     Route: 065
     Dates: start: 2007
  4. SECUKINUMAB. [Suspect]
     Active Substance: SECUKINUMAB
     Indication: PSORIASIS
     Dosage: UNK; UNKNOWN
     Route: 065
     Dates: start: 201603, end: 201611
  5. METHYLPREDNISOLONE. [Suspect]
     Active Substance: METHYLPREDNISOLONE
     Indication: PSORIASIS
     Dosage: UNK
     Route: 048
  6. METHYLPREDNISOLONE. [Suspect]
     Active Substance: METHYLPREDNISOLONE
     Dosage: ORAL METHYLPREDNISOLONE ADDED TO TREATMENT WITH SEKUKINUMAB; ORAL
     Route: 048
     Dates: start: 2016, end: 2016

REACTIONS (4)
  - Pituitary-dependent Cushing^s syndrome [Unknown]
  - Drug ineffective [Unknown]
  - Haemolytic anaemia [Recovered/Resolved]
  - Rebound psoriasis [Unknown]

NARRATIVE: CASE EVENT DATE: 2016
